FAERS Safety Report 5822622-3 (Version None)
Quarter: 2008Q3

REPORT INFORMATION
  Report Type: 
  Country: None (occurrence: None)
  Receive Date: 20080714
  Receipt Date: 20080312
  Transmission Date: 20090109
  Serious: Yes (Other)
  Sender: FDA-Public Use
  Company Number: 552940

PATIENT
  Age: 59 Year
  Sex: Female

DRUGS (3)
  1. BONIVA [Suspect]
     Indication: DRUG USE FOR UNKNOWN INDICATION
  2. FOSAMAX [Suspect]
     Indication: DRUG USE FOR UNKNOWN INDICATION
  3. FORTEO [Concomitant]

REACTIONS (3)
  - DISEASE PROGRESSION [None]
  - GASTRIC ULCER [None]
  - OSTEOPOROSIS [None]
